FAERS Safety Report 4662560-5 (Version None)
Quarter: 2005Q2

REPORT INFORMATION
  Report Type: 
  Country: None (occurrence: None)
  Receive Date: 20050512
  Receipt Date: 20050422
  Transmission Date: 20051028
  Serious: Yes (Other)
  Sender: FDA-Public Use
  Company Number: CA_050408075

PATIENT
  Age: 77 Year
  Sex: Female
  Weight: 46 kg

DRUGS (1)
  1. FORTEO [Suspect]
     Indication: OSTEOPOROSIS
     Dosage: 20 UG
     Dates: start: 20041115

REACTIONS (4)
  - DRUG INEFFECTIVE [None]
  - PATHOLOGICAL FRACTURE [None]
  - SPINAL FRACTURE [None]
  - UPPER LIMB FRACTURE [None]
